FAERS Safety Report 12853989 (Version 2)
Quarter: 2016Q4

REPORT INFORMATION
  Report Type: Report from Study
  Country: CA (occurrence: CA)
  Receive Date: 20161017
  Receipt Date: 20161030
  Transmission Date: 20170207
  Serious: Yes (Death, Hospitalization)
  Sender: FDA-Public Use
  Company Number: CA-B.I. PHARMACEUTICALS,INC./RIDGEFIELD-2015-BI-24367BI

PATIENT
  Age: 69 Year
  Sex: Male
  Weight: 81 kg

DRUGS (11)
  1. DABIGATRAN [Suspect]
     Active Substance: DABIGATRAN
     Indication: ATRIAL FIBRILLATION
     Route: 048
     Dates: start: 20150423, end: 20150928
  2. ACID FOLIQUE [Concomitant]
     Indication: METASTASES TO MENINGES
     Route: 048
  3. INSULINE TORONTO [Concomitant]
     Indication: TYPE 2 DIABETES MELLITUS
     Route: 065
  4. DABIGATRAN [Suspect]
     Active Substance: DABIGATRAN
     Route: 048
     Dates: start: 20150930, end: 20151122
  5. OXAZEPAM. [Concomitant]
     Active Substance: OXAZEPAM
     Indication: INSOMNIA
     Route: 048
     Dates: end: 20150607
  6. DABIGATRAN [Suspect]
     Active Substance: DABIGATRAN
     Indication: THROMBOSIS PROPHYLAXIS
     Route: 048
     Dates: start: 20150424
  7. QUETIAPINE. [Concomitant]
     Active Substance: QUETIAPINE
     Indication: AFFECTIVE DISORDER
     Route: 048
  8. GLUCOPHAGE [Concomitant]
     Active Substance: METFORMIN HYDROCHLORIDE
     Indication: TYPE 2 DIABETES MELLITUS
     Route: 048
  9. LEVETIRACETAM. [Concomitant]
     Active Substance: LEVETIRACETAM
     Indication: EPILEPSY
     Route: 065
  10. CLOPIDOGREL [Concomitant]
     Active Substance: CLOPIDOGREL BISULFATE
     Indication: ANTIPLATELET THERAPY
     Route: 048
     Dates: start: 20150423
  11. CLONAZEPAM. [Concomitant]
     Active Substance: CLONAZEPAM
     Indication: INSOMNIA
     Route: 048

REACTIONS (21)
  - Chest pain [Recovered/Resolved]
  - Dyspnoea [Recovered/Resolved]
  - Atrial fibrillation [Recovered/Resolved]
  - Contusion [Recovered/Resolved]
  - Pneumonia [Recovered/Resolved]
  - Dyspnoea [Recovered/Resolved]
  - Dyspnoea [Recovered/Resolved]
  - Exostosis [Not Recovered/Not Resolved]
  - Cough [Recovered/Resolved]
  - Lung cancer metastatic [Fatal]
  - Pulmonary oedema [Recovered/Resolved]
  - Dyspnoea [Recovered/Resolved]
  - Diarrhoea [Recovered/Resolved]
  - Syncope [Recovered/Resolved]
  - Urinary tract infection [Recovered/Resolved]
  - Musculoskeletal pain [Recovered/Resolved]
  - Pulmonary oedema [Recovered/Resolved]
  - Dizziness [Recovered/Resolved]
  - Pyrexia [Recovered/Resolved]
  - Insomnia [Recovered/Resolved]
  - Pneumonia [Recovered/Resolved]

NARRATIVE: CASE EVENT DATE: 20150501
